FAERS Safety Report 7900279-5 (Version None)
Quarter: 2011Q4

REPORT INFORMATION
  Report Type: 
  Country: None (occurrence: None)
  Receive Date: 20111108
  Receipt Date: 20111028
  Transmission Date: 20120403
  Serious: Yes (Hospitalization, Other)
  Sender: FDA-Public Use
  Company Number: US-JNJFOC-20111003135

PATIENT
  Sex: Male
  Weight: 79.29 kg

DRUGS (7)
  1. REMICADE [Suspect]
     Route: 042
     Dates: start: 20111018
  2. REMICADE [Suspect]
     Indication: COLITIS ULCERATIVE
     Route: 042
     Dates: start: 20110926
  3. MERCAPTOPURINE [Concomitant]
     Indication: COLITIS ULCERATIVE
     Route: 065
  4. TYLENOL-500 [Concomitant]
     Indication: PREMEDICATION
     Route: 048
     Dates: start: 20111018
  5. BENADRYL [Concomitant]
     Indication: PREMEDICATION
     Route: 042
     Dates: start: 20111018
  6. URSODIOL [Concomitant]
     Indication: COLITIS ULCERATIVE
     Route: 065
  7. PREDNISONE [Concomitant]
     Dosage: STOPPED VIA TAPERING
     Route: 065
     Dates: end: 20111018

REACTIONS (14)
  - PAIN [None]
  - ERYTHEMA [None]
  - PAIN IN JAW [None]
  - MUSCULOSKELETAL PAIN [None]
  - TRISMUS [None]
  - SWELLING FACE [None]
  - URTICARIA [None]
  - ARTHRALGIA [None]
  - NASOPHARYNGITIS [None]
  - PRURITUS [None]
  - INFUSION RELATED REACTION [None]
  - EYE SWELLING [None]
  - SCLERAL DISCOLOURATION [None]
  - OROPHARYNGEAL PAIN [None]
